FAERS Safety Report 11151107 (Version 1)
Quarter: 2015Q2

REPORT INFORMATION
  Report Type: Spontaneous
  Country: US (occurrence: None)
  Receive Date: 20150528
  Receipt Date: 20150528
  Transmission Date: 20150821
  Serious: Yes (Other)
  Sender: FDA-Public Use
  Company Number: 2015JUB00136

PATIENT
  Age: 23 Year
  Sex: Female
  Weight: 49.9 kg

DRUGS (5)
  1. SKYLA [Suspect]
     Active Substance: LEVONORGESTREL
     Indication: CONTRACEPTION
     Route: 015
     Dates: start: 2012
  2. ALPRAZOLAM. [Concomitant]
     Active Substance: ALPRAZOLAM
  3. VYVANSE [Concomitant]
     Active Substance: LISDEXAMFETAMINE DIMESYLATE
  4. LAMOTRIGINE TABLETS 150MG (LAMOTRIGINE) TABLET [Suspect]
     Active Substance: LAMOTRIGINE
     Indication: DEPRESSION
     Route: 048
     Dates: start: 2012, end: 201412
  5. ADDERALL [Concomitant]
     Active Substance: AMPHETAMINE ASPARTATE\AMPHETAMINE SULFATE\DEXTROAMPHETAMINE SACCHARATE\DEXTROAMPHETAMINE SULFATE

REACTIONS (5)
  - Musculoskeletal pain [None]
  - Ectopic pregnancy [None]
  - Drug interaction [None]
  - Pregnancy with contraceptive device [None]
  - Exposure during pregnancy [None]

NARRATIVE: CASE EVENT DATE: 201411
